FAERS Safety Report 8222009-2 (Version None)
Quarter: 2012Q1

REPORT INFORMATION
  Report Type: 
  Country: None (occurrence: None)
  Receive Date: 20120320
  Receipt Date: 20120312
  Transmission Date: 20120608
  Serious: Yes (Other)
  Sender: FDA-Public Use
  Company Number: RU-US-EMD SERONO, INC.-7118551

PATIENT
  Age: 26 Year
  Sex: Female

DRUGS (3)
  1. RECOMBINANT GONADOTROPINS [Suspect]
     Indication: OVULATION INDUCTION
  2. CHORIOGONADOTROPIN ALFA [Suspect]
     Indication: OVULATION INDUCTION
  3. PROGESTERONE [Suspect]
     Indication: ASSISTED FERTILISATION
     Route: 067

REACTIONS (1)
  - HYPERCOAGULATION [None]
